FAERS Safety Report 15442345 (Version 1)
Quarter: 2018Q3

REPORT INFORMATION
  Report Type: Spontaneous
  Country: HU (occurrence: HU)
  Receive Date: 20180928
  Receipt Date: 20180928
  Transmission Date: 20181010
  Serious: Yes (Other)
  Sender: FDA-Public Use
  Company Number: HU-SA-2018SA264972

PATIENT
  Age: 67 Year
  Sex: Male

DRUGS (9)
  1. ENAPRIL [Concomitant]
     Active Substance: ENALAPRIL
     Route: 048
  2. XANAX [Concomitant]
     Active Substance: ALPRAZOLAM
     Route: 048
  3. VENTOLIN ES [Concomitant]
     Indication: DYSPNOEA
     Dosage: AS NECESSARY
     Route: 055
  4. SEEBRI BREEZHALER [Concomitant]
     Active Substance: GLYCOPYRROLATE
     Route: 055
  5. EUNOCTIN [Concomitant]
     Route: 048
  6. STIMULOTON [Concomitant]
     Route: 048
  7. CLEXANE [Suspect]
     Active Substance: ENOXAPARIN SODIUM
     Indication: THROMBOSIS PROPHYLAXIS
     Route: 058
     Dates: start: 201803, end: 201804
  8. APIDRA [Interacting]
     Active Substance: INSULIN GLULISINE
     Indication: TYPE 1 DIABETES MELLITUS
     Dosage: 5 IU MORNINGS, 6 IU DAYTIME, 6 IU EVENINGS
     Route: 058
  9. LANTUS [Concomitant]
     Active Substance: INSULIN GLARGINE
     Indication: TYPE 1 DIABETES MELLITUS
     Route: 058

REACTIONS (2)
  - Drug interaction [Unknown]
  - Hypoglycaemia [Recovered/Resolved]

NARRATIVE: CASE EVENT DATE: 201803
